FAERS Safety Report 4697729-7 (Version None)
Quarter: 2005Q2

REPORT INFORMATION
  Report Type: 
  Country: None (occurrence: None)
  Receive Date: 20050621
  Receipt Date: 20050621
  Transmission Date: 20051028
  Serious: Yes (Hospitalization)
  Sender: FDA-Public Use
  Company Number: None

PATIENT
  Age: 73 Year
  Sex: Male
  Weight: 78.9 kg

DRUGS (1)
  1. LITHIUM [Suspect]

REACTIONS (3)
  - CONFUSIONAL STATE [None]
  - SOMNOLENCE [None]
  - TREMOR [None]
